FAERS Safety Report 5174296-5 (Version None)
Quarter: 2006Q4

REPORT INFORMATION
  Report Type: 
  Country: None (occurrence: None)
  Receive Date: 20061214
  Receipt Date: 20060509
  Transmission Date: 20070319
  Serious: Yes (Death, Hospitalization)
  Sender: FDA-Public Use
  Company Number: US-ELI_LILLY_AND_COMPANY-US200608005799

PATIENT
  Age: 75 Year
  Sex: Female
  Weight: 56.689 kg

DRUGS (3)
  1. QUETIAPINE FUMARATE [Concomitant]
     Dates: start: 19980701, end: 19981201
  2. HALOPERIDOL [Concomitant]
     Dates: start: 19980701, end: 19981201
  3. ZYPREXA [Suspect]
     Dosage: UNK, UNK
     Route: 065
     Dates: start: 19980701, end: 19981201

REACTIONS (2)
  - DEATH [None]
  - DIABETES MELLITUS [None]
